FAERS Safety Report 6566786-5 (Version None)
Quarter: 2010Q1

REPORT INFORMATION
  Report Type: 
  Country: None (occurrence: None)
  Receive Date: 20100202
  Receipt Date: 20100122
  Transmission Date: 20100710
  Serious: Yes (Other)
  Sender: FDA-Public Use
  Company Number: KP-WATSON-2010-00857

PATIENT
  Age: 46 Year
  Sex: Female

DRUGS (2)
  1. FLUOROURACIL [Suspect]
     Indication: NASOPHARYNGEAL CANCER
     Dosage: 1000 MG/M2, DAILY
     Route: 042
  2. CISPLATIN [Concomitant]
     Indication: NASOPHARYNGEAL CANCER
     Dosage: 75 MG/M2, Q1H FIRST DAY OF TREATMENT, Q3WEEKS
     Route: 042

REACTIONS (1)
  - WERNICKE'S ENCEPHALOPATHY [None]
